FAERS Safety Report 5747194-3 (Version None)
Quarter: 2008Q2

REPORT INFORMATION
  Report Type: 
  Country: None (occurrence: None)
  Receive Date: 20080520
  Receipt Date: 20080506
  Transmission Date: 20081010
  Serious: Yes (Hospitalization)
  Sender: FDA-Public Use
  Company Number: 2008BI001417

PATIENT
  Age: 57 Year
  Sex: Male

DRUGS (4)
  1. AVONEX [Suspect]
     Indication: MULTIPLE SCLEROSIS
     Dosage: 30 UG; QW; IM
     Route: 030
     Dates: start: 20030623
  2. NORTRIPTYLINE HCL [Concomitant]
  3. TIZANIDINE HCL [Concomitant]
  4. PRILOSEC [Concomitant]

REACTIONS (16)
  - ANASTOMOTIC HAEMORRHAGE [None]
  - COLONIC OBSTRUCTION [None]
  - DEEP VEIN THROMBOSIS POSTOPERATIVE [None]
  - DEHYDRATION [None]
  - ESCHERICHIA URINARY TRACT INFECTION [None]
  - FREQUENT BOWEL MOVEMENTS [None]
  - HAEMORRHAGIC ANAEMIA [None]
  - HYPOKALAEMIA [None]
  - POST PROCEDURAL COMPLICATION [None]
  - POST PROCEDURAL PNEUMONIA [None]
  - POST PROCEDURAL PULMONARY EMBOLISM [None]
  - POSTOPERATIVE ILEUS [None]
  - POSTOPERATIVE RESPIRATORY DISTRESS [None]
  - RECTAL HAEMORRHAGE [None]
  - TACHYCARDIA [None]
  - VOLVULUS [None]
